FAERS Safety Report 8627128 (Version 3)
Quarter: 2013Q1

REPORT INFORMATION
  Report Type: Spontaneous
  Country: US (occurrence: US)
  Receive Date: 20120621
  Receipt Date: 20130328
  Transmission Date: 20140127
  Serious: No
  Sender: FDA-Public Use
  Company Number: US-ALLERGAN-1207537US

PATIENT
  Age: 72 Year
  Sex: Female

DRUGS (8)
  1. LUMIGAN? 0.01% [Suspect]
     Indication: OPEN ANGLE GLAUCOMA
     Dosage: 1 GTT, QHS
     Route: 047
     Dates: start: 201301
  2. LUMIGAN? 0.01% [Suspect]
     Dosage: 1 GTT, QHS
     Route: 047
     Dates: end: 201301
  3. LUMIGAN? 0.01% [Suspect]
     Dosage: 1 GTT, QHS
     Route: 047
     Dates: start: 201108
  4. ALPHAGAN P [Suspect]
     Indication: GLAUCOMA
     Dosage: 1 GTT, QHS
     Route: 047
     Dates: start: 201009, end: 201108
  5. TIMOLOL MALEATE [Concomitant]
     Indication: GLAUCOMA
     Dosage: 2 GTT, QAM
     Route: 047
     Dates: start: 2010
  6. EVISTA [Concomitant]
     Indication: BREAST LUMP REMOVAL
     Dosage: UNK
     Route: 048
  7. SYNTHROID [Concomitant]
     Indication: HYPOTHYROIDISM
     Dosage: 50 NG, QD
     Route: 048
     Dates: start: 1970
  8. SYNTHROID [Concomitant]
     Indication: THYROIDECTOMY

REACTIONS (4)
  - Eyelid irritation [Recovering/Resolving]
  - Eyelid irritation [Recovering/Resolving]
  - Iris hyperpigmentation [Not Recovered/Not Resolved]
  - Ocular hyperaemia [Not Recovered/Not Resolved]
